FAERS Safety Report 16930427 (Version 1)
Quarter: 2019Q4

REPORT INFORMATION
  Report Type: Spontaneous
  Country: IN (occurrence: IN)
  Receive Date: 20191017
  Receipt Date: 20191017
  Transmission Date: 20200122
  Serious: Yes (Other)
  Sender: FDA-Public Use
  Company Number: NVSC2019IN002284

PATIENT
  Age: 43 Year
  Sex: Male

DRUGS (2)
  1. QUETIAPINE. [Suspect]
     Active Substance: QUETIAPINE
     Indication: BIPOLAR DISORDER
     Dosage: 600 MG (IN TWO DIVIDED DOSES)
     Route: 065
  2. DIVALPROEX SODIUM. [Concomitant]
     Active Substance: DIVALPROEX SODIUM
     Indication: BIPOLAR DISORDER
     Dosage: 1000 MG (IN TWO DIVIDED DOSES)
     Route: 065

REACTIONS (3)
  - Palpable purpura [Recovered/Resolved]
  - Hypersensitivity vasculitis [Recovered/Resolved]
  - Rash maculo-papular [Recovered/Resolved]
